FAERS Safety Report 22629917 (Version 1)
Quarter: 2023Q2

REPORT INFORMATION
  Report Type: Spontaneous
  Country: US (occurrence: US)
  Receive Date: 20230622
  Receipt Date: 20230622
  Transmission Date: 20230721
  Serious: Yes (Other)
  Sender: FDA-Public Use
  Company Number: US-BAYER-2023A074581

PATIENT
  Age: 81 Year
  Sex: Female
  Weight: 55.329 kg

DRUGS (14)
  1. BAYER ASPIRIN [Suspect]
     Active Substance: ASPIRIN
     Dosage: EVERY 6 HOURS
     Route: 048
     Dates: end: 20230421
  2. NATURE^S BOUNTY SLEEP3 [Concomitant]
     Dosage: 1 DF, ONCE
     Route: 048
     Dates: start: 20230418, end: 20230418
  3. HERBALS\TURMERIC [Concomitant]
     Active Substance: HERBALS\TURMERIC
     Dosage: UNK UNK, QD
     Route: 048
  4. COENZYME Q10 [Concomitant]
     Active Substance: DIETARY SUPPLEMENT\UBIDECARENONE
     Dosage: UNK UNK, QD
     Route: 048
  5. VITAMINS [Concomitant]
     Active Substance: VITAMINS
  6. LIPITOR [Concomitant]
     Active Substance: ATORVASTATIN CALCIUM
     Indication: Blood cholesterol increased
     Dosage: 40 MG, QD
     Route: 048
  7. ACYCLOVIR [Concomitant]
     Active Substance: ACYCLOVIR
     Indication: Rash
     Dosage: 400 MG, QD
     Route: 048
  8. METOPROLOL [Concomitant]
     Active Substance: METOPROLOL
     Indication: Hypertension
  9. METHOTREXATE [Concomitant]
     Active Substance: METHOTREXATE
     Indication: Rheumatoid arthritis
     Dosage: UNK
  10. PREDNISONE [Concomitant]
     Active Substance: PREDNISONE
     Indication: Rheumatoid arthritis
     Dosage: UNK, QD
  11. AMLODIPINE [Concomitant]
     Active Substance: AMLODIPINE BESYLATE
     Indication: Hypertension
     Dosage: 2.5 MG, QD
     Route: 048
  12. PLAVIX [Concomitant]
     Active Substance: CLOPIDOGREL BISULFATE
     Dosage: 75 MG, QD
     Route: 048
  13. NATOPHEROL [TOCOPHEROL] [Concomitant]
     Dosage: UNK, QD
     Route: 048
  14. TYLENOL [Concomitant]
     Active Substance: ACETAMINOPHEN
     Dosage: 300 MG, QID
     Route: 048

REACTIONS (10)
  - Hypotension [Unknown]
  - Atrial fibrillation [None]
  - Cerebrovascular accident [None]
  - Dizziness [Recovering/Resolving]
  - Chest discomfort [Recovered/Resolved]
  - Nervousness [None]
  - Muscular weakness [None]
  - Headache [Recovering/Resolving]
  - Head discomfort [Recovering/Resolving]
  - Fatigue [None]

NARRATIVE: CASE EVENT DATE: 20230418
